FAERS Safety Report 7741603-6 (Version None)
Quarter: 2011Q3

REPORT INFORMATION
  Report Type: 
  Country: None (occurrence: None)
  Receive Date: 20110909
  Receipt Date: 20110831
  Transmission Date: 20111222
  Serious: Yes (Other)
  Sender: FDA-Public Use
  Company Number: US-ASTRAZENECA-2011SE52719

PATIENT
  Sex: Female

DRUGS (1)
  1. NEXIUM [Suspect]
     Route: 048

REACTIONS (6)
  - THROMBOSIS [None]
  - CARDIAC DISORDER [None]
  - DYSPEPSIA [None]
  - BREAST DISORDER [None]
  - MIGRAINE [None]
  - MEDICAL OBSERVATION ABNORMAL [None]
